FAERS Safety Report 15300119 (Version 1)
Quarter: 2018Q3

REPORT INFORMATION
  Report Type: Spontaneous
  Country: US (occurrence: US)
  Receive Date: 20180821
  Receipt Date: 20180821
  Transmission Date: 20181010
  Serious: No
  Sender: FDA-Public Use
  Company Number: US-PFIZER INC-2018334310

PATIENT
  Age: 62 Year
  Sex: Female

DRUGS (1)
  1. SOMAVERT [Suspect]
     Active Substance: PEGVISOMANT
     Indication: ACROMEGALY
     Dosage: 30 MG, DAILY
     Route: 058
     Dates: start: 20180213

REACTIONS (3)
  - Swelling [Unknown]
  - Central obesity [Unknown]
  - Alopecia [Unknown]

NARRATIVE: CASE EVENT DATE: 2018
